FAERS Safety Report 20307889 (Version 1)
Quarter: 2022Q1

REPORT INFORMATION
  Report Type: Spontaneous
  Country: US (occurrence: US)
  Receive Date: 20220107
  Receipt Date: 20220107
  Transmission Date: 20220423
  Serious: No
  Sender: FDA-Public Use
  Company Number: US-ALLERGAN-2139945US

PATIENT
  Age: 34 Year
  Sex: Female

DRUGS (1)
  1. QULIPTA [Suspect]
     Active Substance: ATOGEPANT
     Indication: Product used for unknown indication
     Dosage: UNK
     Dates: start: 20211028, end: 20211104

REACTIONS (5)
  - Feeling abnormal [Unknown]
  - Headache [Unknown]
  - Nausea [Unknown]
  - Constipation [Unknown]
  - Fatigue [Unknown]

NARRATIVE: CASE EVENT DATE: 20211029
